FAERS Safety Report 6361807-7 (Version None)
Quarter: 2009Q3

REPORT INFORMATION
  Report Type: 
  Country: None (occurrence: None)
  Receive Date: 20090918
  Receipt Date: 20090910
  Transmission Date: 20100115
  Serious: Yes (Life-Threatening, Hospitalization)
  Sender: FDA-Public Use
  Company Number: PL-AMGEN-QUU360765

PATIENT
  Weight: 40 kg

DRUGS (7)
  1. NEULASTA [Suspect]
     Indication: CHEMOTHERAPY
     Route: 058
     Dates: start: 20090729, end: 20090729
  2. CYCLONAMINE [Concomitant]
     Route: 048
     Dates: start: 20090730
  3. OMEPRAZOLE [Concomitant]
     Route: 048
     Dates: start: 20090730
  4. MAGNE-B6 [Concomitant]
     Route: 048
     Dates: start: 20090730
  5. IFOSFAMIDE [Concomitant]
  6. CARBOPLATIN [Concomitant]
  7. ETOPOSIDE [Concomitant]

REACTIONS (3)
  - ASTHENIA [None]
  - FEBRILE NEUTROPENIA [None]
  - VERTIGO [None]
